FAERS Safety Report 12864706 (Version 2)
Quarter: 2016Q4

REPORT INFORMATION
  Report Type: Spontaneous
  Country: US (occurrence: US)
  Receive Date: 20161020
  Receipt Date: 20161212
  Transmission Date: 20170207
  Serious: Yes (Death, Life-Threatening, Hospitalization, Disabling, Other)
  Sender: FDA-Public Use
  Company Number: US-THE MEDICINES COMPANY-US-MDCO-16-00434

PATIENT
  Age: 75 Year
  Sex: Male
  Weight: 84.7 kg

DRUGS (4)
  1. FIDAXOMICIN [Concomitant]
     Active Substance: FIDAXOMICIN
     Indication: ENTEROCOCCAL BACTERAEMIA
     Route: 048
     Dates: start: 20160727, end: 20160819
  2. ORBACTIV [Suspect]
     Active Substance: ORITAVANCIN
     Indication: ENTEROCOCCAL BACTERAEMIA
     Route: 042
     Dates: start: 20160727, end: 20160819
  3. CEFTAROLINE [Concomitant]
     Active Substance: CEFTAROLINE
     Indication: ENTEROCOCCAL BACTERAEMIA
     Route: 042
     Dates: start: 20160727, end: 20160819
  4. TIGECYCLINE. [Concomitant]
     Active Substance: TIGECYCLINE
     Indication: ENTEROCOCCAL BACTERAEMIA
     Route: 042
     Dates: start: 20160727, end: 20160819

REACTIONS (5)
  - Respiratory distress [Fatal]
  - Fluid overload [Fatal]
  - Blood creatinine increased [Fatal]
  - Aspiration [Fatal]
  - Off label use [Fatal]

NARRATIVE: CASE EVENT DATE: 20160727
